FAERS Safety Report 8320253-7 (Version None)
Quarter: 2012Q2

REPORT INFORMATION
  Report Type: 
  Country: None (occurrence: None)
  Receive Date: 20120430
  Receipt Date: 20120419
  Transmission Date: 20120825
  Serious: Yes (Other)
  Sender: FDA-Public Use
  Company Number: US-SHIRE-ALL1-2012-02118

PATIENT
  Sex: Male
  Weight: 72.562 kg

DRUGS (6)
  1. PENTASA [Suspect]
     Dosage: 1500 MG, OTHER(3) 500MG CAPSULES AT DINNER
     Route: 048
  2. ALOE VERA EXTRACT [Concomitant]
     Indication: DYSPEPSIA
     Dosage: UNK(ONE SHOT GLASS), 1X/DAY:QD
     Route: 048
     Dates: start: 20110101
  3. PENTASA [Suspect]
     Indication: COLITIS ULCERATIVE
     Dosage: 1500 MG (3) 500MG CAPSULES AT BREAKFAST OTHER
     Route: 048
  4. DAIRY AID [Concomitant]
     Indication: LACTOSE INTOLERANCE
     Dosage: UNK, AS REQ'D
     Route: 048
     Dates: start: 20110101
  5. PENTASA [Suspect]
     Dosage: 1000 MG (2) 500 MG CAPSULES AT LUNCH
  6. ACETAMINOPHEN [Concomitant]
     Indication: BACK PAIN
     Dosage: 1000 MG(2) 500 MG TABLETS, AS REQ'D
     Route: 048

REACTIONS (4)
  - DIARRHOEA [None]
  - ADVERSE EVENT [None]
  - RASH MACULAR [None]
  - ABDOMINAL PAIN [None]
